FAERS Safety Report 6137532-4 (Version None)
Quarter: 2009Q1

REPORT INFORMATION
  Report Type: 
  Country: None (occurrence: None)
  Receive Date: 20090326
  Receipt Date: 20090213
  Transmission Date: 20090719
  Serious: Yes (Other)
  Sender: FDA-Public Use
  Company Number: 2009EU001087

PATIENT
  Age: 66 Year

DRUGS (5)
  1. FK506(TACROLIMUS) FORMULATION UNKNOWN [Suspect]
     Indication: STEM CELL TRANSPLANT
     Dosage: D
  2. EVEROLIMUS (EVEROLIMUS) [Suspect]
     Indication: STEM CELL TRANSPLANT
     Dosage: 1.5 MG, D, ORAL
     Route: 048
  3. BUSULFAN (BUSULFAN) [Concomitant]
  4. CYCLOPHOSPHAMIDE [Concomitant]
  5. FLUDARABINE PHOSPHATE [Concomitant]

REACTIONS (8)
  - ASCITES [None]
  - BLOOD CREATININE INCREASED [None]
  - COMPLICATIONS OF TRANSPLANT SURGERY [None]
  - HYPERBILIRUBINAEMIA [None]
  - RED BLOOD CELL SCHISTOCYTES PRESENT [None]
  - THROMBOTIC MICROANGIOPATHY [None]
  - VENOOCCLUSIVE LIVER DISEASE [None]
  - WEIGHT INCREASED [None]
